FAERS Safety Report 8207177-0 (Version None)
Quarter: 2012Q1

REPORT INFORMATION
  Report Type: 
  Country: None (occurrence: None)
  Receive Date: 20120314
  Receipt Date: 20120309
  Transmission Date: 20120608
  Serious: No
  Sender: FDA-Public Use
  Company Number: US-PFIZER INC-2012063650

PATIENT
  Sex: Female
  Weight: 68 kg

DRUGS (2)
  1. PRISTIQ [Suspect]
     Indication: DEPRESSION
     Dosage: UNK
     Route: 048
     Dates: start: 20100101
  2. ATIVAN [Concomitant]
     Indication: ANXIETY
     Dosage: 1.5 MG, 2X/DAY

REACTIONS (3)
  - CRYING [None]
  - DRUG INEFFECTIVE [None]
  - EMOTIONAL DISORDER [None]
